FAERS Safety Report 23963982 (Version 2)
Quarter: 2025Q1

REPORT INFORMATION
  Report Type: Spontaneous
  Country: JP (occurrence: JP)
  Receive Date: 20240611
  Receipt Date: 20250127
  Transmission Date: 20250409
  Serious: Yes (Other)
  Sender: MERCK
  Company Number: JP-MSD-2406JPN000469J

PATIENT
  Age: 73 Year
  Sex: Male

DRUGS (6)
  1. KEYTRUDA [Suspect]
     Active Substance: PEMBROLIZUMAB
     Indication: Glottis carcinoma
     Route: 065
  2. KEYTRUDA [Suspect]
     Active Substance: PEMBROLIZUMAB
     Indication: Tumour invasion
  3. FLUOROURACIL [Suspect]
     Active Substance: FLUOROURACIL
     Indication: Glottis carcinoma
     Route: 065
  4. FLUOROURACIL [Suspect]
     Active Substance: FLUOROURACIL
     Indication: Tumour invasion
  5. CISPLATIN [Suspect]
     Active Substance: CISPLATIN
     Indication: Glottis carcinoma
     Route: 065
  6. CISPLATIN [Suspect]
     Active Substance: CISPLATIN
     Indication: Tumour invasion

REACTIONS (1)
  - Myelosuppression [Unknown]
